FAERS Safety Report 15822756 (Version 1)
Quarter: 2019Q1

REPORT INFORMATION
  Report Type: Report from Study
  Country: US (occurrence: US)
  Receive Date: 20190114
  Receipt Date: 20190114
  Transmission Date: 20190417
  Serious: Yes (Other)
  Sender: FDA-Public Use
  Company Number: US-JNJFOC-20190110522

PATIENT
  Sex: Female

DRUGS (1)
  1. STELARA [Suspect]
     Active Substance: USTEKINUMAB
     Indication: PSORIASIS
     Route: 058
     Dates: start: 201812

REACTIONS (6)
  - Psoriasis [Unknown]
  - Arthritis [Not Recovered/Not Resolved]
  - Hypertension [Recovered/Resolved]
  - Cardiac disorder [Unknown]
  - Cerebrovascular accident [Unknown]
  - Pruritus [Recovering/Resolving]
